FAERS Safety Report 6200431-3 (Version None)
Quarter: 2009Q2

REPORT INFORMATION
  Report Type: 
  Country: None (occurrence: None)
  Receive Date: 20090522
  Receipt Date: 20080310
  Transmission Date: 20091009
  Serious: Yes (Death, Hospitalization, Other)
  Sender: FDA-Public Use
  Company Number: US-ALEXION-A200800012

PATIENT
  Sex: Male

DRUGS (28)
  1. SOLIRIS [Suspect]
     Indication: PAROXYSMAL NOCTURNAL HAEMOGLOBINURIA
     Dosage: 600 MG, SINGLE
     Route: 042
     Dates: start: 20070502, end: 20070502
  2. SOLIRIS [Suspect]
     Dosage: 900 MG, SINGLE
     Route: 042
     Dates: start: 20070613, end: 20070613
  3. SOLIRIS [Suspect]
     Dosage: 900 MG, SINGLE
     Route: 042
     Dates: start: 20070627, end: 20070626
  4. SOLIRIS [Suspect]
     Dosage: 900 MG, SINGLE
     Route: 042
     Dates: start: 20070711, end: 20070711
  5. SOLIRIS [Suspect]
     Dosage: 900 MG, SINGLE
     Route: 042
     Dates: start: 20070725, end: 20070725
  6. SOLIRIS [Suspect]
     Dosage: 900 MG, SINGLE
     Route: 042
     Dates: start: 20070808, end: 20070808
  7. SOLIRIS [Suspect]
     Dosage: 900 MG, SINGLE
     Route: 042
     Dates: start: 20070822, end: 20070822
  8. SOLIRIS [Suspect]
     Dosage: 900 MG, SINGLE
     Route: 042
     Dates: start: 20070905, end: 20070905
  9. SOLIRIS [Suspect]
     Dosage: 900 MG, SINGLE
     Route: 042
     Dates: start: 20070919, end: 20070919
  10. SOLIRIS [Suspect]
     Dosage: 900 MG, SINGLE
     Route: 042
     Dates: start: 20071003, end: 20071003
  11. SOLIRIS [Suspect]
     Dosage: 900 MG, SINGLE
     Route: 042
     Dates: start: 20071017, end: 20071017
  12. SOLIRIS [Suspect]
     Dosage: 900 MG, SINGLE
     Route: 042
     Dates: start: 20071031, end: 20071031
  13. SOLIRIS [Suspect]
     Dosage: 900 MG, SINGLE
     Route: 042
     Dates: start: 20071114, end: 20071114
  14. SOLIRIS [Suspect]
     Dosage: 900 MG, SINGLE
     Route: 042
     Dates: start: 20071128, end: 20071128
  15. SOLIRIS [Suspect]
     Dosage: 900 MG, SINGLE
     Route: 042
     Dates: start: 20071212, end: 20071212
  16. SOLIRIS [Suspect]
     Dosage: 900 MG, SINGLE
     Route: 042
     Dates: start: 20071226, end: 20071226
  17. SOLIRIS [Suspect]
     Dosage: 900 MG, SINGLE
     Route: 042
     Dates: start: 20080109, end: 20080109
  18. LISINOPRIL [Concomitant]
     Dosage: 2.5 MG, QD
     Route: 048
  19. NAPROSYN [Concomitant]
     Dosage: 500 MG, TID
     Route: 048
  20. RANITIDINE [Concomitant]
     Dosage: 150 MG, QD HS
     Route: 048
  21. HYTRIN [Concomitant]
     Dosage: 5 MG, QD HS
     Route: 048
  22. QUININE SULFATE [Concomitant]
     Dosage: 250 MG, QD
     Route: 048
  23. ANAGRELIDE HCL [Concomitant]
     Indication: PLATELET COUNT INCREASED
     Dosage: 2 MG, BID
     Route: 048
     Dates: start: 20050601
  24. ASPIRIN [Concomitant]
     Indication: PLATELET COUNT INCREASED
     Dosage: 81 MG, QD
     Route: 048
  25. FOLIC ACID [Concomitant]
     Dosage: 1 MG, QD
     Route: 048
  26. HECTOROL [Concomitant]
     Dosage: 2.5 MG, QD
     Route: 048
  27. EPOGEN [Concomitant]
     Indication: DIALYSIS
     Dosage: 40000 IU, QW
     Dates: start: 20070701
  28. LOPRESSOR [Concomitant]
     Dosage: 25 MG, BID

REACTIONS (14)
  - ABDOMINAL PAIN [None]
  - ACUTE RESPIRATORY DISTRESS SYNDROME [None]
  - CARDIAC ARREST [None]
  - CARDIAC FAILURE CONGESTIVE [None]
  - DIARRHOEA [None]
  - DYSPNOEA [None]
  - HAEMATOCHEZIA [None]
  - HAPTOGLOBIN DECREASED [None]
  - KLEBSIELLA INFECTION [None]
  - LUNG ADENOCARCINOMA [None]
  - PULMONARY HYPERTENSION [None]
  - RESPIRATORY FAILURE [None]
  - SEPSIS [None]
  - SYNCOPE [None]
